FAERS Safety Report 25713764 (Version 2)
Quarter: 2025Q3

REPORT INFORMATION
  Report Type: Spontaneous
  Country: EU (occurrence: EU)
  Receive Date: 20250822
  Receipt Date: 20250905
  Transmission Date: 20251020
  Serious: Yes (Hospitalization, Disabling)
  Sender: ALKEM
  Company Number: None

PATIENT
  Age: 32 Year
  Sex: Male

DRUGS (3)
  1. EVEROLIMUS [Suspect]
     Active Substance: EVEROLIMUS
     Indication: Immunosuppressant drug therapy
     Dosage: 1 MILLIGRAM, BID
     Route: 065
  2. TACROLIMUS [Suspect]
     Active Substance: TACROLIMUS
     Indication: Immunosuppressant drug therapy
     Dosage: 5.5 MILLIGRAM, TID
     Route: 065
  3. PREDNISOLONE [Suspect]
     Active Substance: PREDNISOLONE
     Indication: Immunosuppressant drug therapy
     Dosage: 5 MILLIGRAM, QD
     Route: 065

REACTIONS (2)
  - Anogenital warts [Recovering/Resolving]
  - Papilloma viral infection [Recovering/Resolving]
